FAERS Safety Report 6012242-2 (Version None)
Quarter: 2008Q4

REPORT INFORMATION
  Report Type: 
  Country: None (occurrence: None)
  Receive Date: 20081218
  Receipt Date: 20081208
  Transmission Date: 20090506
  Serious: Yes (Other)
  Sender: FDA-Public Use
  Company Number: GB-ELI_LILLY_AND_COMPANY-GB200810001721

PATIENT
  Sex: Female

DRUGS (6)
  1. FORTEO [Suspect]
     Indication: OSTEOPOROSIS
     Dosage: 20 UG, DAILY (1/D)
     Route: 058
     Dates: start: 20080806
  2. GLUCOSAMINE [Concomitant]
     Dosage: UNK, UNKNOWN
     Route: 065
  3. CALCITRIOL [Concomitant]
     Indication: OSTEOPOROSIS
     Dosage: 250 MG, UNKNOWN
     Route: 048
  4. LOPRAZOLAM [Concomitant]
     Dosage: 1 MG, EACH EVENING
     Route: 065
  5. LANSOPRAZOLE [Concomitant]
     Indication: GASTRITIS
     Dosage: 150 MG, DAILY (1/D)
     Route: 048
  6. ACETAMINOPHEN [Concomitant]
     Dosage: 1 G, 2/D
     Route: 048

REACTIONS (4)
  - ARTHRALGIA [None]
  - BACK PAIN [None]
  - DISEASE PROGRESSION [None]
  - SPINAL FRACTURE [None]
